FAERS Safety Report 6252650-8 (Version None)
Quarter: 2009Q2

REPORT INFORMATION
  Report Type: 
  Country: None (occurrence: None)
  Receive Date: 20090629
  Receipt Date: 20090624
  Transmission Date: 20091009
  Serious: Yes (Other)
  Sender: FDA-Public Use
  Company Number: A0793437A

PATIENT
  Age: 67 Year
  Sex: Male

DRUGS (1)
  1. UREA PEROXIDE [Suspect]
     Indication: DRUG USE FOR UNKNOWN INDICATION
     Dosage: AURAL

REACTIONS (3)
  - DEAFNESS UNILATERAL [None]
  - EAR DISCOMFORT [None]
  - EAR PAIN [None]
